FAERS Safety Report 11846729 (Version 1)
Quarter: 2015Q4

REPORT INFORMATION
  Report Type: Spontaneous
  Country: US (occurrence: US)
  Receive Date: 20151217
  Receipt Date: 20151217
  Transmission Date: 20160305
  Serious: No
  Sender: FDA-Public Use
  Company Number: US-ROCHE-1536389

PATIENT
  Age: 14 Year
  Sex: Female

DRUGS (2)
  1. TAMIFLU [Suspect]
     Active Substance: OSELTAMIVIR PHOSPHATE
     Indication: INFLUENZA
     Dosage: TO TREAT FLU SYMPTOMS
     Route: 048
     Dates: start: 20150210
  2. TAMIFLU [Suspect]
     Active Substance: OSELTAMIVIR PHOSPHATE
     Indication: PROPHYLAXIS
     Dosage: PROPHYLACTIC DOSING
     Route: 065
     Dates: start: 20150118, end: 20150123

REACTIONS (1)
  - Influenza [Not Recovered/Not Resolved]

NARRATIVE: CASE EVENT DATE: 201502
